FAERS Safety Report 7738074-2 (Version None)
Quarter: 2011Q3

REPORT INFORMATION
  Report Type: 
  Country: None (occurrence: None)
  Receive Date: 20110908
  Receipt Date: 20110824
  Transmission Date: 20111222
  Serious: Yes (Hospitalization)
  Sender: FDA-Public Use
  Company Number: AT-BAYER-2011-076545

PATIENT
  Age: 13 Year
  Sex: Female

DRUGS (1)
  1. ASPIRIN [Suspect]
     Indication: INTENTIONAL OVERDOSE
     Dosage: 7500 MG, ONCE
     Route: 048
     Dates: start: 20110504, end: 20110504

REACTIONS (2)
  - INTENTIONAL OVERDOSE [None]
  - HEADACHE [None]
